FAERS Safety Report 8068012-7 (Version None)
Quarter: 2012Q1

REPORT INFORMATION
  Report Type: 
  Country: None (occurrence: None)
  Receive Date: 20120124
  Receipt Date: 20110926
  Transmission Date: 20120608
  Serious: No
  Sender: FDA-Public Use
  Company Number: US-AMGEN-USASP2011049709

PATIENT
  Age: 80 Year
  Sex: Female

DRUGS (6)
  1. LIPITOR [Concomitant]
  2. SOTALOL HCL [Concomitant]
  3. LISINOPRIL [Concomitant]
  4. PROLIA [Suspect]
     Indication: OSTEOPOROSIS POSTMENOPAUSAL
     Dosage: 60 MG, UNK
     Dates: start: 20110101
  5. FUROSEMIDE [Concomitant]
  6. CALCIUM WITH VITAMIN D             /00944201/ [Concomitant]

REACTIONS (1)
  - BACK PAIN [None]
